FAERS Safety Report 12641286 (Version 2)
Quarter: 2016Q3

REPORT INFORMATION
  Report Type: Spontaneous
  Country: US (occurrence: US)
  Receive Date: 20160810
  Receipt Date: 20160817
  Transmission Date: 20161109
  Serious: No
  Sender: FDA-Public Use
  Company Number: US-PFIZER INC-2016370149

PATIENT
  Age: 65 Year
  Sex: Female

DRUGS (7)
  1. CALCIUM [Suspect]
     Active Substance: CALCIUM
     Dosage: UNK
  2. ZOCOR [Suspect]
     Active Substance: SIMVASTATIN
     Dosage: UNK
  3. DOLOBID [Suspect]
     Active Substance: DIFLUNISAL
     Dosage: UNK
  4. CLEOCIN [Suspect]
     Active Substance: CLINDAMYCIN PHOSPHATE
     Dosage: UNK
  5. TOLECTIN [Suspect]
     Active Substance: TOLMETIN SODIUM
     Dosage: UNK
  6. PARAFON [Suspect]
     Active Substance: ACETAMINOPHEN\CHLORZOXAZONE
     Dosage: UNK
  7. ASPARTAME [Suspect]
     Active Substance: ASPARTAME
     Dosage: UNK

REACTIONS (1)
  - Drug hypersensitivity [Unknown]
